FAERS Safety Report 18845178 (Version 1)
Quarter: 2021Q1

REPORT INFORMATION
  Report Type: Spontaneous
  Country: US (occurrence: US)
  Receive Date: 20210204
  Receipt Date: 20210204
  Transmission Date: 20210419
  Serious: Yes (Hospitalization)
  Sender: FDA-Public Use
  Company Number: None

PATIENT
  Sex: Male
  Weight: 109.8 kg

DRUGS (2)
  1. CISPLATIN. [Suspect]
     Active Substance: CISPLATIN
     Dates: end: 20210113
  2. 5?FLUOROURACIL (5?FU)(19893) [Suspect]
     Active Substance: FLUOROURACIL
     Dates: end: 20210116

REACTIONS (12)
  - Presyncope [None]
  - Asthenia [None]
  - Lethargy [None]
  - Somnolence [None]
  - Nausea [None]
  - Vomiting [None]
  - Muscular weakness [None]
  - Tremor [None]
  - Hypomagnesaemia [None]
  - Blood creatinine increased [None]
  - Anaemia [None]
  - Fatigue [None]

NARRATIVE: CASE EVENT DATE: 20210119
